FAERS Safety Report 13472059 (Version 6)
Quarter: 2017Q4

REPORT INFORMATION
  Report Type: Report from Study
  Country: US (occurrence: US)
  Receive Date: 20170424
  Receipt Date: 20171101
  Transmission Date: 20180320
  Serious: Yes (Hospitalization, Other)
  Sender: FDA-Public Use
  Company Number: US-GILEAD-2017-0269029

PATIENT
  Age: 57 Year
  Sex: Male
  Weight: 93 kg

DRUGS (17)
  1. AMBRISENTAN [Suspect]
     Active Substance: AMBRISENTAN
     Indication: PULMONARY ARTERIAL HYPERTENSION
     Dosage: 10 MG, QD
     Route: 065
     Dates: start: 20120131
  2. AMBRISENTAN [Suspect]
     Active Substance: AMBRISENTAN
     Indication: CHRONIC OBSTRUCTIVE PULMONARY DISEASE
  3. DESYREL [Concomitant]
     Active Substance: TRAZODONE HYDROCHLORIDE
  4. XARELTO [Concomitant]
     Active Substance: RIVAROXABAN
  5. ZYLOPRIM [Concomitant]
     Active Substance: ALLOPURINOL
  6. AMBRISENTAN [Suspect]
     Active Substance: AMBRISENTAN
     Indication: HYPOXIA
  7. SYMBICORT [Concomitant]
     Active Substance: BUDESONIDE\FORMOTEROL FUMARATE DIHYDRATE
  8. INSPRA [Concomitant]
     Active Substance: EPLERENONE
  9. ADEMPAS [Concomitant]
     Active Substance: RIOCIGUAT
  10. FLONASE                            /00908302/ [Concomitant]
     Active Substance: MOMETASONE FUROATE
  11. AMBRISENTAN [Suspect]
     Active Substance: AMBRISENTAN
     Indication: SLEEP APNOEA SYNDROME
  12. XANAX [Concomitant]
     Active Substance: ALPRAZOLAM
  13. LASIX [Concomitant]
     Active Substance: FUROSEMIDE
  14. AMBRISENTAN [Suspect]
     Active Substance: AMBRISENTAN
     Indication: SYSTEMIC LUPUS ERYTHEMATOSUS
  15. AMBRISENTAN [Suspect]
     Active Substance: AMBRISENTAN
     Indication: CHRONIC RESPIRATORY FAILURE
  16. TYVASO [Concomitant]
     Active Substance: TREPROSTINIL
  17. METOLAZONE. [Concomitant]
     Active Substance: METOLAZONE

REACTIONS (8)
  - Palpitations [Not Recovered/Not Resolved]
  - Pulmonary arterial hypertension [Unknown]
  - Condition aggravated [Not Recovered/Not Resolved]
  - Chest pain [Not Recovered/Not Resolved]
  - Dyspnoea [Not Recovered/Not Resolved]
  - Pneumonia mycoplasmal [Recovered/Resolved]
  - Acute respiratory failure [Recovered/Resolved]
  - Chronic obstructive pulmonary disease [Unknown]
